FAERS Safety Report 10234156 (Version 1)
Quarter: 2014Q1

REPORT INFORMATION
  Report Type: Spontaneous
  Country: US (occurrence: None)
  Receive Date: 20140306
  Receipt Date: 20140306
  Transmission Date: 20141002
  Serious: Yes (Hospitalization)
  Sender: FDA-Public Use
  Company Number: 163-21880-13052955

PATIENT
  Age: 62 Year
  Sex: Male
  Weight: 92.99 kg

DRUGS (9)
  1. REVLIMID (LENALIDOMIDE) (10 MILLIGRAM, CAPSULES) [Suspect]
     Indication: PLASMA CELL MYELOMA
     Route: 048
     Dates: start: 20120120
  2. DEXAMETHASONE (DEXAMETHASONE) [Concomitant]
  3. NORVASC (AMLODIPINE BESILATE) [Concomitant]
  4. OMEPRAZOLE (OMEPRAZOLE) [Concomitant]
  5. ASPIRIN (ACETYLSALICYLIC ACID) [Concomitant]
  6. METOPROLOL SUCCINATE (METOPROLOL SUCCINATE) [Concomitant]
  7. VALACYCLOVIR (VALACICLOVIR HYDROCHLORIDE) [Concomitant]
  8. CENTRUM SILVER (CENTRUM SILVER) [Concomitant]
  9. COMPAZINE (PROCHLORPERAZINE EDISYLATE) [Concomitant]

REACTIONS (3)
  - Transient ischaemic attack [None]
  - Pyrexia [None]
  - Staphylococcal sepsis [None]
